FAERS Safety Report 6057997-6 (Version None)
Quarter: 2009Q1

REPORT INFORMATION
  Report Type: 
  Country: None (occurrence: None)
  Receive Date: 20090129
  Receipt Date: 20090119
  Transmission Date: 20090719
  Serious: Yes (Hospitalization)
  Sender: FDA-Public Use
  Company Number: US-GILEAD-2009-0019920

PATIENT
  Age: 42 Year
  Sex: Female

DRUGS (21)
  1. TRUVADA [Suspect]
     Indication: HIV INFECTION
     Dates: start: 20081106
  2. TRUVADA [Suspect]
     Dates: end: 20080911
  3. DARUNAVIR [Suspect]
     Dates: start: 20080805, end: 20080828
  4. DARUNAVIR [Suspect]
     Dates: start: 20081106
  5. RALTEGRAVIR [Suspect]
     Dates: start: 20081106
  6. RALTEGRAVIR [Suspect]
     Dates: end: 20080911
  7. RITONAVIR [Suspect]
     Dates: start: 20081106
  8. RITONAVIR [Suspect]
     Dates: end: 20080911
  9. ZIDOVUDINE [Suspect]
     Dates: start: 20081106, end: 20081209
  10. ZIDOVUDINE [Suspect]
     Dates: end: 20080911
  11. ETRAVIRINE [Suspect]
     Dates: start: 20080805, end: 20080911
  12. ETRAVIRINE [Suspect]
     Dates: start: 20081106
  13. HYDROXYZINE [Concomitant]
  14. DRONABINOL [Concomitant]
  15. FAMOTIDINE [Concomitant]
  16. ONDANSETRON HYDROCHLORIDE [Concomitant]
  17. DEXAMETHASONE [Concomitant]
  18. PROCHLORPERAZINE EDISYLATE [Concomitant]
  19. POTASSIUM CHLORIDE [Concomitant]
  20. TRAZODONE HYDROCHLORIDE [Concomitant]
  21. DOCUSATE SODIUM [Concomitant]

REACTIONS (20)
  - ANOREXIA [None]
  - ASTHENIA [None]
  - CHEILITIS [None]
  - DEPRESSION [None]
  - DIARRHOEA [None]
  - GASTRIC ULCER [None]
  - GASTROINTESTINAL DISORDER [None]
  - GASTROINTESTINAL MUCOSAL DISORDER [None]
  - HEPATOTOXICITY [None]
  - HIATUS HERNIA [None]
  - HYPERSENSITIVITY [None]
  - IMMUNE RECONSTITUTION SYNDROME [None]
  - OESOPHAGEAL CANDIDIASIS [None]
  - PANCREATITIS [None]
  - PANCYTOPENIA [None]
  - PNEUMONIA [None]
  - PYREXIA [None]
  - RASH [None]
  - TUBULOINTERSTITIAL NEPHRITIS [None]
  - WEIGHT DECREASED [None]
